FAERS Safety Report 4289259-1 (Version None)
Quarter: 2004Q1

REPORT INFORMATION
  Report Type: 
  Country: None (occurrence: None)
  Receive Date: 20040206
  Receipt Date: 20040129
  Transmission Date: 20041129
  Serious: Yes (Hospitalization)
  Sender: FDA-Public Use
  Company Number: JP-JNJFOC-20040105711

PATIENT
  Age: 73 Year
  Sex: Male

DRUGS (1)
  1. LEVOFLOXACIN [Suspect]
     Dosage: 500 MG, 1 IN 1 DAY, ORAL
     Route: 048
     Dates: start: 20030915, end: 20030918

REACTIONS (3)
  - CONDITION AGGRAVATED [None]
  - HEPATITIS [None]
  - HEPATITIS CHOLESTATIC [None]
